FAERS Safety Report 14110235 (Version 1)
Quarter: 2017Q4

REPORT INFORMATION
  Report Type: Spontaneous
  Country: US (occurrence: US)
  Receive Date: 20171020
  Receipt Date: 20171020
  Transmission Date: 20180321
  Serious: No
  Sender: FDA-Public Use
  Company Number: US-009507513-1709USA011165

PATIENT
  Age: 33 Year
  Sex: Female
  Weight: 90.25 kg

DRUGS (2)
  1. XANAX [Concomitant]
     Active Substance: ALPRAZOLAM
     Dosage: UNK
  2. IMPLANON [Suspect]
     Active Substance: ETONOGESTREL
     Indication: CONTRACEPTION
     Dosage: IMPLANT; EVERY 3 YEARS; LOCATION: LEFT ARM
     Route: 059
     Dates: start: 20110328

REACTIONS (7)
  - Incorrect drug administration duration [Unknown]
  - Oligomenorrhoea [Unknown]
  - Mood altered [Unknown]
  - Weight increased [Unknown]
  - Depression [Unknown]
  - Complication associated with device [Not Recovered/Not Resolved]
  - Anxiety [Unknown]

NARRATIVE: CASE EVENT DATE: 20140329
